FAERS Safety Report 12515205 (Version 1)
Quarter: 2016Q2

REPORT INFORMATION
  Report Type: Spontaneous
  Country: US (occurrence: US)
  Receive Date: 20160630
  Receipt Date: 20160630
  Transmission Date: 20160815
  Serious: No
  Sender: FDA-Public Use
  Company Number: US-JNJFOC-20160423382

PATIENT
  Age: 63 Year
  Sex: Female
  Weight: 71.22 kg

DRUGS (5)
  1. LOMOTIL [Concomitant]
     Active Substance: ATROPINE SULFATE\DIPHENOXYLATE HYDROCHLORIDE
     Indication: GASTRIC DISORDER
     Route: 065
  2. ATENENOL [Concomitant]
     Indication: BLOOD PRESSURE MEASUREMENT
     Route: 048
  3. XARELTO [Suspect]
     Active Substance: RIVAROXABAN
     Indication: DEEP VEIN THROMBOSIS
     Route: 048
     Dates: start: 201602
  4. ATACAND [Concomitant]
     Active Substance: CANDESARTAN CILEXETIL
     Indication: BLOOD PRESSURE MEASUREMENT
     Route: 048
  5. DESLORATADINE. [Concomitant]
     Active Substance: DESLORATADINE
     Route: 048

REACTIONS (3)
  - Blood glucose increased [Unknown]
  - Rash [Not Recovered/Not Resolved]
  - Blood disorder [Not Recovered/Not Resolved]

NARRATIVE: CASE EVENT DATE: 201604
